FAERS Safety Report 9768530 (Version 1)
Quarter: 2013Q4

REPORT INFORMATION
  Report Type: Spontaneous
  Country: US (occurrence: US)
  Receive Date: 20131217
  Receipt Date: 20131217
  Transmission Date: 20140711
  Serious: Yes (Other)
  Sender: FDA-Public Use
  Company Number: US-JNJFOC-20131207875

PATIENT
  Sex: Female

DRUGS (6)
  1. FAMOTIDINE [Suspect]
     Route: 065
  2. FAMOTIDINE [Suspect]
     Indication: ANTACID THERAPY
     Route: 065
  3. RANITIDINE [Suspect]
     Indication: ANTACID THERAPY
     Route: 065
  4. OMEPRAZOLE [Suspect]
     Indication: ANTACID THERAPY
     Route: 065
  5. LANSOPRAZOLE [Suspect]
     Indication: ANTACID THERAPY
     Route: 065
  6. ESOMEPRAZOLE [Suspect]
     Indication: ANTACID THERAPY
     Route: 065

REACTIONS (1)
  - Exposure during pregnancy [Unknown]
